FAERS Safety Report 8166392-5 (Version None)
Quarter: 2012Q1

REPORT INFORMATION
  Report Type: 
  Country: None (occurrence: None)
  Receive Date: 20120227
  Receipt Date: 20110706
  Transmission Date: 20120608
  Serious: No
  Sender: FDA-Public Use
  Company Number: US-MYLANLABS-2011S1014171

PATIENT
  Age: 66 Year
  Sex: Female

DRUGS (1)
  1. AMNESTEEM [Suspect]
     Route: 048

REACTIONS (1)
  - AGITATION [None]
